FAERS Safety Report 14543563 (Version 2)
Quarter: 2018Q2

REPORT INFORMATION
  Report Type: Spontaneous
  Country: ES (occurrence: ES)
  Receive Date: 20180216
  Receipt Date: 20180531
  Transmission Date: 20180711
  Serious: Yes (Hospitalization)
  Sender: FDA-Public Use
  Company Number: ES-009507513-1801ESP009038

PATIENT
  Age: 79 Year
  Sex: Female
  Weight: 85 kg

DRUGS (5)
  1. ZEPATIER [Suspect]
     Active Substance: ELBASVIR\GRAZOPREVIR
     Dosage: UNK
     Route: 048
     Dates: start: 201801
  2. ZEPATIER [Suspect]
     Active Substance: ELBASVIR\GRAZOPREVIR
     Indication: CHRONIC HEPATITIS C
     Dosage: 1 TABLET DAILY
     Route: 048
     Dates: start: 20171208, end: 201712
  3. DABIGATRAN ETEXILATE [Interacting]
     Active Substance: DABIGATRAN ETEXILATE
     Indication: AORTIC STENOSIS
  4. DABIGATRAN ETEXILATE [Interacting]
     Active Substance: DABIGATRAN ETEXILATE
     Indication: HEPATITIS C
     Dosage: 110 MG, Q12H
     Route: 048
     Dates: end: 201712
  5. SINTROM [Suspect]
     Active Substance: ACENOCOUMAROL
     Dosage: UNK
     Dates: start: 201712

REACTIONS (3)
  - Malaise [Recovered/Resolved]
  - International normalised ratio increased [Recovered/Resolved]
  - Hypocoagulable state [Recovered/Resolved]

NARRATIVE: CASE EVENT DATE: 201712
